FAERS Safety Report 21306942 (Version 3)
Quarter: 2023Q1

REPORT INFORMATION
  Report Type: Spontaneous
  Country: JP (occurrence: JP)
  Receive Date: 20220908
  Receipt Date: 20230320
  Transmission Date: 20230417
  Serious: Yes (Death, Other)
  Sender: FDA-Public Use
  Company Number: JP-ELI_LILLY_AND_COMPANY-JP202209003319

PATIENT
  Age: 72 Year
  Sex: Male
  Weight: 61 kg

DRUGS (21)
  1. NECITUMUMAB [Suspect]
     Active Substance: NECITUMUMAB
     Indication: Squamous cell carcinoma of lung
     Dosage: 800 MG, UNKNOWN
     Route: 041
     Dates: start: 20220810
  2. CISPLATIN [Suspect]
     Active Substance: CISPLATIN
     Indication: Squamous cell carcinoma of lung
     Dosage: 125 MG, UNKNOWN
     Route: 041
     Dates: start: 20220810
  3. CISPLATIN [Suspect]
     Active Substance: CISPLATIN
     Dosage: UNK
     Route: 041
  4. CISPLATIN [Suspect]
     Active Substance: CISPLATIN
     Dosage: 2100 MG
  5. CISPLATIN [Suspect]
     Active Substance: CISPLATIN
     Dosage: UNK
     Route: 041
  6. GEMCITABINE HYDROCHLORIDE [Concomitant]
     Active Substance: GEMCITABINE HYDROCHLORIDE
     Indication: Squamous cell carcinoma of lung
     Dosage: UNK
     Dates: start: 20220810
  7. MAGNESIUM SULFATE [Concomitant]
     Active Substance: MAGNESIUM SULFATE
     Dosage: UNK
     Dates: start: 20220810, end: 20220825
  8. TAMSULOSIN HYDROCHLORIDE [Concomitant]
     Active Substance: TAMSULOSIN HYDROCHLORIDE
  9. WARFARIN [Concomitant]
     Active Substance: WARFARIN
  10. VONOPRAZAN FUMARATE [Concomitant]
     Active Substance: VONOPRAZAN FUMARATE
  11. PREGABALIN [Concomitant]
     Active Substance: PREGABALIN
  12. AMITIZA [Concomitant]
     Active Substance: LUBIPROSTONE
  13. SULFAMETHOXAZOLE\TRIMETHOPRIM [Concomitant]
     Active Substance: SULFAMETHOXAZOLE\TRIMETHOPRIM
  14. SENNOSIDES [Concomitant]
     Active Substance: SENNOSIDES
     Dosage: UNK
     Dates: start: 20220814
  15. CHLORPROMAZINE HIBENZATE [Concomitant]
     Active Substance: CHLORPROMAZINE HIBENZATE
     Dosage: UNK
     Dates: start: 20220815
  16. PALONOSETRON [Concomitant]
     Active Substance: PALONOSETRON
  17. DEXAMETHASONE [Concomitant]
     Active Substance: DEXAMETHASONE
  18. MANNITOL [Concomitant]
     Active Substance: MANNITOL
  19. APREPITANT [Concomitant]
     Active Substance: APREPITANT
  20. DECADRON [Concomitant]
     Active Substance: DEXAMETHASONE
  21. GRANISETRON [Concomitant]
     Active Substance: GRANISETRON

REACTIONS (7)
  - Febrile neutropenia [Fatal]
  - Platelet count decreased [Unknown]
  - Adrenal insufficiency [Unknown]
  - Infection [Unknown]
  - Ventricular tachycardia [Unknown]
  - Blood magnesium decreased [Unknown]
  - Blood phosphorus decreased [Unknown]

NARRATIVE: CASE EVENT DATE: 20220811
